FAERS Safety Report 5625792-5 (Version None)
Quarter: 2008Q1

REPORT INFORMATION
  Report Type: 
  Country: None (occurrence: None)
  Receive Date: 20080212
  Receipt Date: 20080212
  Transmission Date: 20080703
  Serious: No
  Sender: FDA-Public Use
  Company Number: None

PATIENT
  Age: 27 Year
  Sex: Female
  Weight: 56.6996 kg

DRUGS (1)
  1. LEVAQUIN [Suspect]
     Indication: SINUSITIS
     Dosage: 500MG 1 DAILY PO
     Route: 048

REACTIONS (7)
  - ANXIETY [None]
  - EAR PAIN [None]
  - INSOMNIA [None]
  - TEMPOROMANDIBULAR JOINT SYNDROME [None]
  - TENDONITIS [None]
  - TINNITUS [None]
  - VERTIGO [None]
